FAERS Safety Report 23060678 (Version 1)
Quarter: 2023Q4

REPORT INFORMATION
  Report Type: Spontaneous
  Country: AR (occurrence: AR)
  Receive Date: 20231012
  Receipt Date: 20231012
  Transmission Date: 20240110
  Serious: Yes (Other)
  Sender: FDA-Public Use
  Company Number: AR-PFIZER INC-PV202300165013

PATIENT
  Age: 68 Year
  Sex: Female

DRUGS (2)
  1. IBRANCE [Suspect]
     Active Substance: PALBOCICLIB
     Indication: Breast cancer metastatic
     Dosage: 100 MG, CYCLIC( DAILY 3X1 SCHEME)
     Dates: start: 20210720
  2. LETROZOLE [Concomitant]
     Active Substance: LETROZOLE

REACTIONS (5)
  - Arrhythmia [Not Recovered/Not Resolved]
  - COVID-19 [Unknown]
  - Lymphocyte count decreased [Not Recovered/Not Resolved]
  - Nail pigmentation [Not Recovered/Not Resolved]
  - Memory impairment [Not Recovered/Not Resolved]

NARRATIVE: CASE EVENT DATE: 20220101
